FAERS Safety Report 5903796-2 (Version None)
Quarter: 2008Q3

REPORT INFORMATION
  Report Type: 
  Country: None (occurrence: None)
  Receive Date: 20080930
  Receipt Date: 20080924
  Transmission Date: 20090109
  Serious: Yes (Death, Hospitalization, Other)
  Sender: FDA-Public Use
  Company Number: BR-ABBOTT-06P-020-0351984-00

PATIENT
  Sex: Female
  Weight: 47 kg

DRUGS (5)
  1. HUMIRA [Suspect]
     Indication: RHEUMATOID ARTHRITIS
     Route: 058
     Dates: start: 20050607, end: 20060510
  2. HUMIRA [Suspect]
     Dates: start: 20060611, end: 20060815
  3. ETANERCEPT [Suspect]
     Indication: DRUG USE FOR UNKNOWN INDICATION
  4. LEFLUNOMIDE [Concomitant]
     Indication: RHEUMATOID ARTHRITIS
     Route: 048
     Dates: start: 20060201
  5. METHOTREXATE [Concomitant]
     Indication: RHEUMATOID ARTHRITIS
     Dates: start: 20060601

REACTIONS (8)
  - DRUG INEFFECTIVE [None]
  - INCISION SITE INFECTION [None]
  - INFECTION [None]
  - LUNG INFECTION [None]
  - NODULE ON EXTREMITY [None]
  - PULMONARY OEDEMA [None]
  - RHEUMATOID FACTOR INCREASED [None]
  - RHEUMATOID NODULE [None]
